FAERS Safety Report 8551903-8 (Version None)
Quarter: 2012Q3

REPORT INFORMATION
  Report Type: 
  Country: None (occurrence: None)
  Receive Date: 20120730
  Receipt Date: 20120719
  Transmission Date: 20120928
  Serious: Yes (Death, Other)
  Sender: FDA-Public Use
  Company Number: CN-BAXTER-2012BAX012411

PATIENT
  Sex: Female
  Weight: 55 kg

DRUGS (1)
  1. 5% GLUCOSE  INJECTION [Suspect]
     Indication: MEDICATION DILUTION
     Route: 041
     Dates: start: 20110320, end: 20110320

REACTIONS (4)
  - HYPERPYREXIA [None]
  - COMA [None]
  - HEPATIC NEOPLASM MALIGNANT [None]
  - HYPOPNOEA [None]
